FAERS Safety Report 5381662-1 (Version None)
Quarter: 2007Q2

REPORT INFORMATION
  Report Type: 
  Country: None (occurrence: None)
  Receive Date: 20070629
  Receipt Date: 20070307
  Transmission Date: 20071010
  Serious: Yes (Hospitalization)
  Sender: FDA-Public Use
  Company Number: US200702004404

PATIENT
  Age: 79 Year
  Sex: Female

DRUGS (12)
  1. HUMALOG [Suspect]
     Dosage: 5 U, EACH MORNING ; 4 U, EACH EVENING
     Dates: start: 20050101
  2. HUMALOG [Suspect]
     Dosage: 5 U, EACH MORNING ; 4 U, EACH EVENING
     Dates: start: 20050101
  3. HUMULIN N [Suspect]
     Indication: DIABETES MELLITUS NON-INSULIN-DEPENDENT
     Dates: start: 19870101, end: 19900101
  4. ATENOLOL [Concomitant]
  5. ISMO [Concomitant]
  6. NITRO (GLYCERYL TRINITRATE) PATCH [Concomitant]
  7. COZAAR [Concomitant]
  8. COUMADIN [Concomitant]
  9. ASPIRIN [Concomitant]
  10. MULTIVITAMIN [Concomitant]
  11. IRON (IRON) [Concomitant]
  12. AMARYL [Concomitant]

REACTIONS (18)
  - AORTIC OCCLUSION [None]
  - ARTERIAL OCCLUSIVE DISEASE [None]
  - BLOOD CHOLESTEROL INCREASED [None]
  - BLOOD GLUCOSE FLUCTUATION [None]
  - BRONCHITIS VIRAL [None]
  - CARDIOMYOPATHY [None]
  - DYSKINESIA [None]
  - FATIGUE [None]
  - FEMORAL ARTERY OCCLUSION [None]
  - GOITRE [None]
  - IMMUNE SYSTEM DISORDER [None]
  - INJECTION SITE PAIN [None]
  - PERIPHERAL ARTERIAL OCCLUSIVE DISEASE [None]
  - PNEUMONIA PRIMARY ATYPICAL [None]
  - SICK SINUS SYNDROME [None]
  - TENDONITIS [None]
  - WEIGHT DECREASED [None]
  - WEIGHT INCREASED [None]
